FAERS Safety Report 5504745-1 (Version None)
Quarter: 2007Q4

REPORT INFORMATION
  Report Type: 
  Country: None (occurrence: None)
  Receive Date: 20071031
  Receipt Date: 20071013
  Transmission Date: 20080405
  Serious: Yes (Hospitalization, Other)
  Sender: FDA-Public Use
  Company Number: 2007US002570

PATIENT
  Age: 40 Year
  Sex: Female
  Weight: 46 kg

DRUGS (4)
  1. PROGRAF [Suspect]
     Indication: RENAL TRANSPLANT
     Dosage: 4 MG, BID, ORAL; 0.8 MG/KG, UID/QD, ORAL
     Route: 048
     Dates: start: 20070701
  2. PROGRAF [Suspect]
     Indication: RENAL TRANSPLANT
     Dosage: 4 MG, BID, ORAL; 0.8 MG/KG, UID/QD, ORAL
     Route: 048
     Dates: start: 20071015
  3. LOVASTATIN [Concomitant]
  4. AMLODIPINE [Concomitant]

REACTIONS (10)
  - ABDOMINAL PAIN [None]
  - BLOOD CREATININE INCREASED [None]
  - CONVULSION [None]
  - DIARRHOEA [None]
  - DRUG ADMINISTRATION ERROR [None]
  - DRUG TOXICITY [None]
  - LETHARGY [None]
  - PARTIAL SEIZURES [None]
  - TREMOR [None]
  - UNDERWEIGHT [None]
